FAERS Safety Report 6516629-0 (Version None)
Quarter: 2009Q4

REPORT INFORMATION
  Report Type: 
  Country: None (occurrence: None)
  Receive Date: 20091216
  Receipt Date: 20090316
  Transmission Date: 20100525
  Serious: Yes (Other)
  Sender: FDA-Public Use
  Company Number: 2009NI0062

PATIENT
  Age: 74 Year
  Sex: Female

DRUGS (5)
  1. NITROLINGUAL PUMPSPRAY [Suspect]
     Indication: CHEST PAIN
     Dosage: 1 SPRAY, AS NEEDED
  2. IMDUR [Concomitant]
  3. LIPITOR [Concomitant]
  4. NORVASC [Concomitant]
  5. PLAVIX [Concomitant]

REACTIONS (2)
  - DRUG INEFFECTIVE [None]
  - INTENTIONAL DRUG MISUSE [None]
